FAERS Safety Report 26209038 (Version 1)
Quarter: 2025Q4

REPORT INFORMATION
  Report Type: Spontaneous
  Country: US (occurrence: US)
  Receive Date: 20251229
  Receipt Date: 20251229
  Transmission Date: 20260117
  Serious: Yes (Hospitalization, Other)
  Sender: ALEMBIC
  Company Number: US-ALEMBIC PHARMACUETICALS LIMITED-2025SCAL001853

PATIENT

DRUGS (3)
  1. METOPROLOL TARTRATE [Suspect]
     Active Substance: METOPROLOL TARTRATE
     Indication: Hypertrophic cardiomyopathy
     Dosage: UNK
     Route: 065
  2. DILTIAZEM HYDROCHLORIDE [Suspect]
     Active Substance: DILTIAZEM HYDROCHLORIDE
     Indication: Hypertrophic cardiomyopathy
     Dosage: UNK
     Route: 065
  3. DONEPEZIL HYDROCHLORIDE [Suspect]
     Active Substance: DONEPEZIL HYDROCHLORIDE
     Indication: Dementia
     Dosage: UNK
     Route: 065

REACTIONS (9)
  - BRASH syndrome [Recovering/Resolving]
  - Cardiac arrest [Recovering/Resolving]
  - Dizziness [Recovering/Resolving]
  - Bradycardia [Recovering/Resolving]
  - Atrioventricular block [Recovering/Resolving]
  - Hypotension [Recovering/Resolving]
  - Blood potassium increased [Recovering/Resolving]
  - Blood creatine increased [Recovering/Resolving]
  - Metabolic acidosis [Recovering/Resolving]
